FAERS Safety Report 26037442 (Version 3)
Quarter: 2025Q4

REPORT INFORMATION
  Report Type: Report from Study
  Country: US (occurrence: US)
  Receive Date: 20251112
  Receipt Date: 20251210
  Transmission Date: 20260118
  Serious: Yes (Other)
  Sender: NOVARTIS
  Company Number: US-002147023-NVSC2025US133489

PATIENT
  Sex: Female

DRUGS (2)
  1. KESIMPTA [Suspect]
     Active Substance: OFATUMUMAB
     Indication: Multiple sclerosis
     Dosage: 20 MG, QMO (0.4 ML INJECTION)
     Route: 030
     Dates: start: 20250818
  2. KESIMPTA [Suspect]
     Active Substance: OFATUMUMAB
     Dosage: 20 MG, OTHER (ONCE A WEEK FOR 3 WEEKS, SKIP WEEK 4, WEEK 5 START MONTHLY)
     Route: 058

REACTIONS (9)
  - Immunodeficiency [Recovering/Resolving]
  - Multiple sclerosis relapse [Unknown]
  - Neck pain [Unknown]
  - Neuralgia [Recovered/Resolved]
  - Pruritus [Recovered/Resolved]
  - Depressed mood [Recovering/Resolving]
  - Infectious mononucleosis [Recovered/Resolved]
  - Oropharyngeal pain [Recovering/Resolving]
  - Decreased appetite [Unknown]
